FAERS Safety Report 14307186 (Version 1)
Quarter: 2017Q4

REPORT INFORMATION
  Report Type: Spontaneous
  Country: US (occurrence: US)
  Receive Date: 20171219
  Receipt Date: 20171219
  Transmission Date: 20180321
  Serious: Yes (Other)
  Sender: FDA-Public Use
  Company Number: None

PATIENT
  Sex: Female

DRUGS (5)
  1. QUINAPRIL. [Concomitant]
     Active Substance: QUINAPRIL
  2. LONSURF [Suspect]
     Active Substance: TIPIRACIL HYDROCHLORIDE\TRIFLURIDINE
     Indication: COLON CANCER
     Route: 048
     Dates: start: 20170714
  3. ATORVASTATIN [Concomitant]
     Active Substance: ATORVASTATIN
  4. FOLIC ACID. [Concomitant]
     Active Substance: FOLIC ACID
  5. HYDROCHLOROT [Concomitant]
     Active Substance: HYDROCHLOROTHIAZIDE

REACTIONS (3)
  - Fatigue [None]
  - Therapy cessation [None]
  - Haemoglobin decreased [None]
